FAERS Safety Report 18569131 (Version 3)
Quarter: 2021Q2

REPORT INFORMATION
  Report Type: Spontaneous
  Country: US (occurrence: US)
  Receive Date: 20201202
  Receipt Date: 20210423
  Transmission Date: 20210717
  Serious: No
  Sender: FDA-Public Use
  Company Number: US-PFIZER INC-2020465231

PATIENT
  Age: 26 Year
  Sex: Female
  Weight: 49.9 kg

DRUGS (1)
  1. DEPO?PROVERA [Suspect]
     Active Substance: MEDROXYPROGESTERONE ACETATE
     Indication: CONTRACEPTION
     Dosage: UNKNOWN DOSE, INJECTION ONCE EVERY 3 MONTHS
     Dates: start: 2020, end: 2020

REACTIONS (2)
  - Drug dose omission by device [Unknown]
  - Syringe issue [Unknown]

NARRATIVE: CASE EVENT DATE: 2020
